FAERS Safety Report 12818807 (Version 1)
Quarter: 2016Q4

REPORT INFORMATION
  Report Type: Spontaneous
  Country: US (occurrence: US)
  Receive Date: 20161006
  Receipt Date: 20161006
  Transmission Date: 20170207
  Serious: Yes (Other)
  Sender: FDA-Public Use
  Company Number: None

PATIENT
  Age: 62 Year
  Sex: Female
  Weight: 117 kg

DRUGS (1)
  1. HYOCYAMINE 0.125MG SUBLINGUAL TA [Suspect]
     Active Substance: HYOSCYAMINE
     Indication: DIARRHOEA
     Dosage: ?          QUANTITY:120 TABLET(S);?
     Route: 060
     Dates: start: 20160728, end: 20160829

REACTIONS (4)
  - Energy increased [None]
  - Dizziness [None]
  - Nausea [None]
  - Feeling abnormal [None]

NARRATIVE: CASE EVENT DATE: 20160816
